FAERS Safety Report 10468905 (Version 2)
Quarter: 2014Q3

REPORT INFORMATION
  Report Type: Report from Study
  Country: FR (occurrence: FR)
  Receive Date: 20140923
  Receipt Date: 20140923
  Transmission Date: 20150326
  Serious: Yes (Other)
  Sender: FDA-Public Use
  Company Number: FR-LEO PHARMA-229057

PATIENT
  Age: 46 Year
  Sex: Female
  Weight: 50 kg

DRUGS (5)
  1. CICALFATE CREAM [Concomitant]
     Indication: PRODUCT USED FOR UNKNOWN INDICATION
     Dates: end: 20140815
  2. CICALFATE LOTION [Concomitant]
     Indication: PRODUCT USED FOR UNKNOWN INDICATION
  3. PICATO [Suspect]
     Active Substance: INGENOL MEBUTATE
     Indication: ACTINIC KERATOSIS
     Route: 061
     Dates: start: 20140723, end: 20140723
  4. SOLUPRED [Concomitant]
     Active Substance: PREDNISOLONE
     Indication: PRODUCT USED FOR UNKNOWN INDICATION
  5. FUCIDINE [Concomitant]
     Active Substance: FUSIDIC ACID
     Indication: PRODUCT USED FOR UNKNOWN INDICATION

REACTIONS (9)
  - Application site pruritus [Recovered/Resolved with Sequelae]
  - Application site warmth [Recovered/Resolved with Sequelae]
  - Eyelid oedema [Recovered/Resolved with Sequelae]
  - Incorrect drug administration duration [Unknown]
  - Application site pain [Recovered/Resolved with Sequelae]
  - Application site ulcer [Recovered/Resolved with Sequelae]
  - Application site vesicles [Recovered/Resolved with Sequelae]
  - Application site paraesthesia [Recovered/Resolved with Sequelae]
  - Application site erythema [Recovered/Resolved with Sequelae]

NARRATIVE: CASE EVENT DATE: 20140724
